FAERS Safety Report 14578275 (Version 1)
Quarter: 2018Q1

REPORT INFORMATION
  Report Type: Spontaneous
  Country: US (occurrence: US)
  Receive Date: 20180227
  Receipt Date: 20180227
  Transmission Date: 20180509
  Serious: No
  Sender: FDA-Public Use
  Company Number: US-BIOGEN-2017BI00409889

PATIENT
  Age: 56 Year
  Sex: Female

DRUGS (3)
  1. ZINBRYTA [Suspect]
     Active Substance: DACLIZUMAB
     Route: 065
     Dates: start: 20170418, end: 20170718
  2. ZINBRYTA [Suspect]
     Active Substance: DACLIZUMAB
     Indication: MULTIPLE SCLEROSIS
     Route: 058
     Dates: start: 20170522
  3. ACTAR [Concomitant]
     Indication: SARCOIDOSIS
     Route: 065

REACTIONS (13)
  - Asthenia [Not Recovered/Not Resolved]
  - Gait disturbance [Unknown]
  - Confusional state [Unknown]
  - Abdominal pain [Not Recovered/Not Resolved]
  - Lethargy [Unknown]
  - Gait inability [Unknown]
  - Chills [Recovered/Resolved]
  - Balance disorder [Unknown]
  - Memory impairment [Not Recovered/Not Resolved]
  - Aphasia [Unknown]
  - Diarrhoea [Unknown]
  - Headache [Unknown]
  - Fatigue [Not Recovered/Not Resolved]

NARRATIVE: CASE EVENT DATE: 20170523
